FAERS Safety Report 18607152 (Version 2)
Quarter: 2020Q4

REPORT INFORMATION
  Report Type: Report from Study
  Country: CA (occurrence: CA)
  Receive Date: 20201211
  Receipt Date: 20201228
  Transmission Date: 20210114
  Serious: Yes (Hospitalization)
  Sender: FDA-Public Use
  Company Number: PHHY2019CA091069

PATIENT
  Age: 55 Year
  Sex: Female

DRUGS (2)
  1. VOTRIENT [Suspect]
     Active Substance: PAZOPANIB HYDROCHLORIDE
     Indication: METASTATIC RENAL CELL CARCINOMA
     Dosage: 800 MG
     Route: 048
     Dates: start: 20190411
  2. VOTRIENT [Suspect]
     Active Substance: PAZOPANIB HYDROCHLORIDE
     Dosage: 200 MG
     Route: 065
     Dates: start: 2019

REACTIONS (17)
  - Vaginal erosion [Unknown]
  - Traumatic haematoma [Unknown]
  - Nausea [Unknown]
  - Diarrhoea [Unknown]
  - Dyspnoea [Unknown]
  - Vulvovaginal erythema [Unknown]
  - Rash macular [Unknown]
  - Vulvovaginal pruritus [Unknown]
  - Procedural pain [Unknown]
  - Cough [Unknown]
  - Nasopharyngitis [Unknown]
  - Dry skin [Unknown]
  - Liver disorder [Unknown]
  - Anorectal discomfort [Unknown]
  - Glossodynia [Unknown]
  - Constipation [Unknown]
  - Non-cardiac chest pain [Recovering/Resolving]

NARRATIVE: CASE EVENT DATE: 201904
